FAERS Safety Report 7577373-4 (Version None)
Quarter: 2011Q2

REPORT INFORMATION
  Report Type: 
  Country: None (occurrence: None)
  Receive Date: 20110621
  Receipt Date: 20110608
  Transmission Date: 20111010
  Serious: Yes (Other)
  Sender: FDA-Public Use
  Company Number: FR-005511

PATIENT
  Sex: Male

DRUGS (9)
  1. ASPIRIN [Concomitant]
  2. FOSAMAX [Suspect]
     Indication: PROSTATE CANCER METASTATIC
     Dosage: (70 MG 1X/WEEK ORAL)
     Route: 048
     Dates: start: 20110209
  3. NEXIUM [Concomitant]
  4. LASIX [Concomitant]
  5. ARICEPT [Concomitant]
  6. FIRMAGON [Suspect]
     Indication: PROSTATE CANCER METASTATIC
     Dosage: 240 MG 1X SUBCUTANEOUS), (80 MG 1X/MONTH SUBCUTANEOUS)
     Route: 058
     Dates: start: 20110209, end: 20110209
  7. FORLAX [Concomitant]
  8. DURAGESIC-100 [Concomitant]
  9. OXAZEPAM [Concomitant]

REACTIONS (1)
  - DEEP VEIN THROMBOSIS [None]
